FAERS Safety Report 16336359 (Version 3)
Quarter: 2019Q2

REPORT INFORMATION
  Report Type: Spontaneous
  Country: US (occurrence: US)
  Receive Date: 20190521
  Receipt Date: 20190529
  Transmission Date: 20190711
  Serious: No
  Sender: FDA-Public Use
  Company Number: US-VIFOR (INTERNATIONAL) INC.-VIT-2019-04397

PATIENT
  Sex: Female

DRUGS (6)
  1. SENSIPAR [Concomitant]
     Active Substance: CINACALCET HYDROCHLORIDE
     Dosage: MAXIMUM DOSE
  2. VELPHORO [Suspect]
     Active Substance: FERRIC OXYHYDROXIDE
     Indication: PHOSPHORUS METABOLISM DISORDER
     Dosage: AFTER MEAL
     Route: 048
  3. VELPHORO [Suspect]
     Active Substance: FERRIC OXYHYDROXIDE
     Indication: END STAGE RENAL DISEASE
  4. CALCITRIOL. [Concomitant]
     Active Substance: CALCITRIOL
     Indication: BLOOD PARATHYROID HORMONE ABNORMAL
     Route: 048
  5. CALCIUM ACETATE. [Concomitant]
     Active Substance: CALCIUM ACETATE
  6. HECTOROL [Concomitant]
     Active Substance: DOXERCALCIFEROL
     Route: 042

REACTIONS (1)
  - Diarrhoea [Unknown]
